FAERS Safety Report 20646260 (Version 1)
Quarter: 2022Q1

REPORT INFORMATION
  Report Type: Spontaneous
  Country: US (occurrence: US)
  Receive Date: 20220329
  Receipt Date: 20220329
  Transmission Date: 20220424
  Serious: No
  Sender: FDA-Public Use
  Company Number: US-drreddys-SPO/USA/22/0147940

PATIENT
  Sex: Male

DRUGS (3)
  1. OLANZAPINE [Suspect]
     Active Substance: OLANZAPINE
     Indication: Product used for unknown indication
  2. OLANZAPINE [Suspect]
     Active Substance: OLANZAPINE
     Dosage: OLANZAPINE TABLETS 15 AND 20MG- UNSPECIFIED
  3. OLANZAPINE [Suspect]
     Active Substance: OLANZAPINE
     Dosage: OLANZAPINE TABLETS 2.5MG, 5, 7.5 AND 10MG- UNSPECIFIED

REACTIONS (1)
  - Tremor [Unknown]
